FAERS Safety Report 8242089-8 (Version None)
Quarter: 2012Q1

REPORT INFORMATION
  Report Type: 
  Country: None (occurrence: None)
  Receive Date: 20120329
  Receipt Date: 20120323
  Transmission Date: 20120608
  Serious: No
  Sender: FDA-Public Use
  Company Number: US-BIOGENIDEC-2012BI010359

PATIENT
  Sex: Female

DRUGS (1)
  1. AVONEX [Suspect]
     Indication: MULTIPLE SCLEROSIS
     Route: 030
     Dates: start: 19981102

REACTIONS (5)
  - PAIN [None]
  - URINARY TRACT DISORDER [None]
  - MUSCULOSKELETAL DISORDER [None]
  - STRESS [None]
  - MULTIPLE SCLEROSIS RELAPSE [None]
